FAERS Safety Report 9947606 (Version 1)
Quarter: 2014Q1

REPORT INFORMATION
  Report Type: Report from Study
  Country: US (occurrence: US)
  Receive Date: 20140303
  Receipt Date: 20140303
  Transmission Date: 20141002
  Serious: Yes (Other)
  Sender: FDA-Public Use
  Company Number: US-ABBVIE-13P-163-1058632-00

PATIENT
  Sex: Female
  Weight: 54.48 kg

DRUGS (5)
  1. HUMIRA [Suspect]
     Indication: CROHN^S DISEASE
     Route: 058
     Dates: start: 2010, end: 201208
  2. HUMIRA [Suspect]
     Route: 058
     Dates: start: 201211, end: 201211
  3. HUMIRA [Suspect]
     Route: 058
     Dates: start: 201211, end: 201211
  4. HUMIRA [Suspect]
     Route: 058
     Dates: start: 201212
  5. UNKNOWN MEDICATION [Concomitant]
     Indication: CONTRACEPTION

REACTIONS (2)
  - Crohn^s disease [Recovered/Resolved]
  - Malaise [Recovered/Resolved]
